FAERS Safety Report 4836623-5 (Version None)
Quarter: 2005Q4

REPORT INFORMATION
  Report Type: 
  Country: None (occurrence: None)
  Receive Date: 20051121
  Receipt Date: 20051107
  Transmission Date: 20060501
  Serious: Yes (Hospitalization)
  Sender: FDA-Public Use
  Company Number: 2005118971

PATIENT
  Age: 66 Year
  Sex: Male
  Weight: 69 kg

DRUGS (4)
  1. AZITHROMYCIN [Suspect]
     Indication: PNEUMONIA
     Dosage: 500 MG (1 D), ORAL
     Route: 048
     Dates: start: 20050815, end: 20050817
  2. MINOCYCLINE HCL [Suspect]
     Indication: ILL-DEFINED DISORDER
     Dosage: ORAL
     Route: 048
     Dates: start: 20050805, end: 20050812
  3. ROCEPHIN [Suspect]
     Indication: PNEUMONIA
     Dosage: 2 GRAM (1 D), INTRAVENOUS
     Route: 042
     Dates: start: 20050727, end: 20050819
  4. OZEX (TOSUFLOXACIN TOSILATE) [Concomitant]

REACTIONS (6)
  - CONDITION AGGRAVATED [None]
  - GENERAL PHYSICAL HEALTH DETERIORATION [None]
  - HILAR LYMPHADENOPATHY [None]
  - LYMPHADENOPATHY MEDIASTINAL [None]
  - PLEURAL EFFUSION [None]
  - PNEUMONIA [None]
